FAERS Safety Report 18811934 (Version 1)
Quarter: 2021Q1

REPORT INFORMATION
  Report Type: Spontaneous
  Country: ES (occurrence: ES)
  Receive Date: 20210130
  Receipt Date: 20210130
  Transmission Date: 20210419
  Serious: Yes (Other)
  Sender: FDA-Public Use
  Company Number: ES-AUROBINDO-AUR-APL-2021-003213

PATIENT
  Age: 19 Year
  Sex: Female
  Weight: 75 kg

DRUGS (1)
  1. ETHINYLESTRADIOL+DROSPIRENONE 3/0.03MG [Suspect]
     Active Substance: DROSPIRENONE\ETHINYL ESTRADIOL
     Indication: POLYCYSTIC OVARIES
     Dosage: UNK (PREVIOUS FOUR YEARS)
     Route: 048

REACTIONS (1)
  - Blood copper increased [Recovered/Resolved]
